FAERS Safety Report 5108904-1 (Version None)
Quarter: 2006Q3

REPORT INFORMATION
  Report Type: 
  Country: None (occurrence: None)
  Receive Date: 20060915
  Receipt Date: 20060915
  Transmission Date: 20061208
  Serious: Yes (Hospitalization)
  Sender: FDA-Public Use
  Company Number: None

PATIENT
  Sex: Male
  Weight: 62.7 kg

DRUGS (4)
  1. BUSULFAN [Suspect]
     Dosage: 408 MG
  2. FLUDARABINE PHOSPHATE [Suspect]
     Dosage: 250 MG
  3. METHOTREXATE [Suspect]
     Dosage: 24 MG
  4. TACROLIMUS [Suspect]
     Dosage: SEE IMAGE

REACTIONS (5)
  - CRYPTOGENIC ORGANISING PNEUMONIA [None]
  - DYSPNOEA [None]
  - HYPOXIA [None]
  - PNEUMOTHORAX [None]
  - STEM CELL TRANSPLANT [None]
